FAERS Safety Report 9774551 (Version 1)
Quarter: 2013Q4

REPORT INFORMATION
  Report Type: Spontaneous
  Country: US (occurrence: US)
  Receive Date: 20131220
  Receipt Date: 20131220
  Transmission Date: 20140711
  Serious: Yes (Hospitalization, Other)
  Sender: FDA-Public Use
  Company Number: US-ELI_LILLY_AND_COMPANY-US201312006173

PATIENT
  Age: 75 Year
  Sex: Female

DRUGS (15)
  1. HUMULIN 30% REGULAR, 70% NPH [Suspect]
     Indication: DIABETES MELLITUS
     Dosage: 60 U, BID
     Route: 065
  2. HUMULIN 30% REGULAR, 70% NPH [Suspect]
     Dosage: 60 U, BID
     Route: 065
  3. HUMULIN 30% REGULAR, 70% NPH [Suspect]
     Dosage: 60 U, BID
     Route: 065
  4. METOPROLOL [Concomitant]
     Dosage: 25 MG, QD
     Route: 065
  5. LOSARTAN [Concomitant]
     Dosage: 100 MG, QD
     Route: 065
  6. PANTOPRAZOLE [Concomitant]
     Dosage: 40 MG, QD
     Route: 065
  7. ASPIRIN [Concomitant]
     Dosage: 81 MG, QD
     Route: 065
  8. ISOSORBIDE MONONITRATE [Concomitant]
     Dosage: 60 MG, QD
     Route: 065
  9. FUROSEMIDE [Concomitant]
     Dosage: 40 MG, QD
     Route: 065
  10. OXYBUTYNIN [Concomitant]
     Dosage: 10 MG, EACH EVENING
     Route: 065
  11. COLCRYS [Concomitant]
     Dosage: 60 MG, OTHER
     Route: 065
  12. FERGON [Concomitant]
     Dosage: 27 MG, BID
     Route: 065
  13. ALLOPURINOL [Concomitant]
     Dosage: 200 MG, EACH MORNING
     Route: 065
  14. NOVOLOG [Concomitant]
     Dosage: UNK, PRN
     Route: 065
  15. NAPROXEN [Concomitant]
     Dosage: 500 MG, BID
     Route: 065

REACTIONS (6)
  - Cerebrovascular accident [Recovered/Resolved with Sequelae]
  - Endometrial cancer [Unknown]
  - Skin cancer [Recovered/Resolved]
  - Peripheral paralysis [Not Recovered/Not Resolved]
  - Cataract [Not Recovered/Not Resolved]
  - Incorrect dose administered [Unknown]
